FAERS Safety Report 17655507 (Version 5)
Quarter: 2021Q1

REPORT INFORMATION
  Report Type: Spontaneous
  Country: US (occurrence: US)
  Receive Date: 20200410
  Receipt Date: 20210125
  Transmission Date: 20210419
  Serious: No
  Sender: FDA-Public Use
  Company Number: US-PFIZER INC-2017032721

PATIENT
  Age: 68 Year
  Sex: Male

DRUGS (32)
  1. LANTUS [Concomitant]
     Active Substance: INSULIN GLARGINE
     Dosage: 54 IU, 1X/DAY (INJECT 54 UNITS SUBCUTANEOUSLY ONCE DAILY)
     Route: 058
  2. XYLOCAINE [Concomitant]
     Active Substance: LIDOCAINE HYDROCHLORIDE
     Dosage: UNK (USE SMALLEST EFFECTIVE AMOUNT)
  3. SELENIUM [Concomitant]
     Active Substance: SELENIUM
     Dosage: 200 UG, 1X/DAY (TAKE 1 CAP BY MOUTH ONCE DAILY)
     Route: 048
  4. FLOMAX [Concomitant]
     Active Substance: TAMSULOSIN HYDROCHLORIDE
     Dosage: 0.4 MG, 1X/DAY (TAKE ONE CAPSULE BY MOUTH ONCE DAILY AFTER BREAKFAST (SAME TIME EVERY DAY 30 MINUTES
     Route: 048
  5. VITAMIN E [Concomitant]
     Active Substance: .ALPHA.-TOCOPHEROL
     Dosage: 1000 IU, 1X/DAY (TAKE 1,000 UNITS BY MOUTH ONCE DAILY. MORNING)
     Route: 048
  6. CELEXA [Concomitant]
     Active Substance: CITALOPRAM HYDROBROMIDE
     Dosage: 40 MG, 1X/DAY (TAKE 1 TAB BY MOUTH ONCE DAILY)
     Route: 048
  7. COLACE [Concomitant]
     Active Substance: DOCUSATE SODIUM
     Indication: CONSTIPATION
     Dosage: 150 MG, DAILY (TAKE 3 CAPS BY MOUTH AT BEDTIME. TAKE AS NEEDED FOR CONSTIPATION WHILE TAKING NARCOTI
     Route: 048
  8. ELAVIL [Concomitant]
     Active Substance: AMITRIPTYLINE HYDROCHLORIDE
     Dosage: 50 MG, DAILY (TAKE 1 TAB BY MOUTH AT BEDTIME)
     Route: 048
  9. LASIX [Concomitant]
     Active Substance: FUROSEMIDE
     Dosage: 40 MG, DAILY (TAKE 1 TAB BY MOUTH ONCE DAILY)
     Route: 048
  10. KENALOG [Concomitant]
     Active Substance: TRIAMCINOLONE ACETONIDE
     Indication: RASH PRURITIC
     Dosage: UNK, AS NEEDED (APPLY 2 TIMES DAILY AS NEEDED)
     Route: 061
  11. ARIMIDEX [Concomitant]
     Active Substance: ANASTROZOLE
     Dosage: 0.5 MG, UNK (TAKE 1/2 TABLET THREE TIMES WEEKLY)
  12. COD LIVER OIL [Concomitant]
     Active Substance: COD LIVER OIL
     Dosage: 1 DF, 4X/DAY (TAKE BY MOUTH. 1 TAB AM, NOON, SUPPER AND NIGHT)
     Route: 048
  13. DEX4 [Concomitant]
     Indication: BLOOD GLUCOSE DECREASED
     Dosage: UNK, AS NEEDED
     Route: 048
  14. ASTELIN [Concomitant]
     Active Substance: AZELASTINE HYDROCHLORIDE
     Dosage: UNK, 2X/DAY (USE 2 SPRAYS INTO EACH NOSTRIL 2 TIMES DAILY)
     Route: 045
  15. FERROUS SULFATE. [Concomitant]
     Active Substance: FERROUS SULFATE
     Dosage: 325 MG, DAILY (TAKE 325 MG BY MOUTH ONCE DAILY)
     Route: 048
  16. FISH OIL [Concomitant]
     Active Substance: FISH OIL
     Dosage: 1 DF, 2X/DAY (1 CAP AM 1 CAP SUPPER)
  17. GLUCOTROL [Concomitant]
     Active Substance: GLIPIZIDE
     Dosage: 15 MG, DAILY
     Route: 048
  18. NIZORAL [Concomitant]
     Active Substance: KETOCONAZOLE
     Dosage: UNK, DAILY
     Route: 061
  19. LYSINE [Concomitant]
     Active Substance: LYSINE
     Dosage: 1000 MG, 1X/DAY (TAKE 1 TAB BY MOUTH ONCE DAILY)
     Route: 048
  20. MYCOSTATIN [Concomitant]
     Active Substance: NYSTATIN
     Dosage: UNK, 2X/DAY
     Route: 061
  21. LIPITOR [Concomitant]
     Active Substance: ATORVASTATIN CALCIUM
     Dosage: 20 MG, 1X/DAY (TAKE 1 TAB BY MOUTH ONCE DAILY)
     Route: 048
  22. FOLBIC [Concomitant]
     Active Substance: CYANOCOBALAMIN\FOLIC ACID\PYRIDOXINE
     Dosage: 1 DF, 2X/DAY (TAKE 1 TAB BY MOUTH 2 TIMES DAILY)
     Route: 048
  23. PRILOSEC [Concomitant]
     Active Substance: OMEPRAZOLE MAGNESIUM
     Dosage: 20 MG, DAILY (TAKE 1 CAP BY MOUTH ONCE DAILY)
     Route: 048
  24. MIRAPEX [Concomitant]
     Active Substance: PRAMIPEXOLE DIHYDROCHLORIDE
     Dosage: UNK, DAILY (TAKE 1?2 TABS BY MOUTH AT BEDTIME)
     Route: 048
  25. DEPO TESTOSTERONE [Concomitant]
     Active Substance: TESTOSTERONE
     Indication: BLOOD TESTOSTERONE DECREASED
     Dosage: 200 MG, CYCLIC (EVERY 2 WEEK)
     Route: 030
  26. VITAMIN D [Concomitant]
     Active Substance: VITAMIN D NOS
     Dosage: 1000 IU, 1X/DAY (TAKE 1,000 UNITS BY MOUTH ONCE DAILY)
     Route: 048
  27. FOLIC ACID. [Concomitant]
     Active Substance: FOLIC ACID
     Dosage: 400 UG, 1X/DAY (TAKE 400 MCG BY MOUTH ONCE DAILY)
     Route: 048
  28. GLUCOPHAGE [Concomitant]
     Active Substance: METFORMIN HYDROCHLORIDE
     Dosage: 1000 MG, 2X/DAY (TAKE 1 TAB BY MOUTH 2 TIMES DAILY WITH MORNING AND EVENING MEAL)
     Route: 048
  29. SAW PALMETTO EXTRACT [Concomitant]
     Dosage: 1 DF, DAILY (TAKE 1 CAP BY MOUTH ONCE DAILY.)
     Route: 048
  30. LYRICA [Suspect]
     Active Substance: PREGABALIN
     Indication: BACK PAIN
     Dosage: 150 MG, 3X/DAY (1 CAP PO TID/TAKE 1 CAPSULE BY MOUTH 3 TIMES A DAY AS DIRECTED BY PHYSICIAN)
     Route: 048
     Dates: start: 20170113
  31. LYRICA [Suspect]
     Active Substance: PREGABALIN
     Indication: SCIATICA
  32. AMOXIL [Concomitant]
     Active Substance: AMOXICILLIN
     Dosage: 500 MG, 3X/DAY (TAKE 1 CAPSULE THREE TIMES DAILY)

REACTIONS (6)
  - Pain in extremity [Unknown]
  - Insomnia [Unknown]
  - Product dose omission issue [Unknown]
  - Nervous system disorder [Unknown]
  - Cognitive disorder [Unknown]
  - Hypoacusis [Unknown]
